FAERS Safety Report 4858041-6 (Version None)
Quarter: 2005Q4

REPORT INFORMATION
  Report Type: 
  Country: None (occurrence: None)
  Receive Date: 20051219
  Receipt Date: 20050503
  Transmission Date: 20060501
  Serious: No
  Sender: FDA-Public Use
  Company Number: US-GLAXOSMITHKLINE-A0556990A

PATIENT
  Age: 42 Year
  Sex: Male

DRUGS (1)
  1. AMERICAN FARE NTS, 21MG STEP 1 [Suspect]
     Dates: start: 20050423, end: 20050503

REACTIONS (7)
  - APPLICATION SITE ERYTHEMA [None]
  - CHEST PAIN [None]
  - DIZZINESS [None]
  - MOVEMENT DISORDER [None]
  - MUSCULOSKELETAL STIFFNESS [None]
  - NAUSEA [None]
  - PAIN IN EXTREMITY [None]
